FAERS Safety Report 23749037 (Version 2)
Quarter: 2024Q2

REPORT INFORMATION
  Report Type: Spontaneous
  Country: US (occurrence: US)
  Receive Date: 20240416
  Receipt Date: 20240619
  Transmission Date: 20240716
  Serious: Yes (Other)
  Sender: FDA-Public Use
  Company Number: US-SANDOZ-SDZ2024US039205

PATIENT
  Sex: Female

DRUGS (2)
  1. DIFLUPREDNATE [Suspect]
     Active Substance: DIFLUPREDNATE
     Indication: Product used for unknown indication
     Dosage: .05 ML, QID
     Route: 047
     Dates: start: 20240325, end: 20240412
  2. PROLENSA [Concomitant]
     Active Substance: BROMFENAC SODIUM
     Indication: Product used for unknown indication
     Route: 065

REACTIONS (4)
  - Retinal oedema [Unknown]
  - Blindness unilateral [Unknown]
  - Product dose omission issue [Unknown]
  - Wrong technique in product usage process [Unknown]
